FAERS Safety Report 16695270 (Version 1)
Quarter: 2019Q3

REPORT INFORMATION
  Report Type: Spontaneous
  Country: CA (occurrence: CA)
  Receive Date: 20190813
  Receipt Date: 20190813
  Transmission Date: 20191004
  Serious: Yes (Hospitalization, Disabling)
  Sender: FDA-Public Use
  Company Number: CA-ACCORD-151242

PATIENT
  Age: 16 Year
  Sex: Male
  Weight: 62 kg

DRUGS (9)
  1. ONDANSETRON [Concomitant]
     Active Substance: ONDANSETRON
  2. LEUCOVORIN. [Concomitant]
     Active Substance: LEUCOVORIN
  3. CETIRIZINE [Concomitant]
     Active Substance: CETIRIZINE HYDROCHLORIDE
  4. FUROSEMIDE. [Concomitant]
     Active Substance: FUROSEMIDE
  5. MERCAPTOPURINE/MERCAPTOPURINE ANHYDROUS [Concomitant]
  6. VINCRISTINE [Concomitant]
     Active Substance: VINCRISTINE
  7. METHOTREXATE. [Suspect]
     Active Substance: METHOTREXATE
     Indication: ACUTE LYMPHOCYTIC LEUKAEMIA
     Route: 042
  8. CEFTAZIDIME/CEFTAZIDIME PENTAHYDRATE [Concomitant]
  9. PREGABALIN. [Concomitant]
     Active Substance: PREGABALIN

REACTIONS (3)
  - Dysphagia [Recovered/Resolved]
  - Weight decreased [Recovered/Resolved]
  - Mucosal inflammation [Recovered/Resolved]
